FAERS Safety Report 7430740-1 (Version None)
Quarter: 2011Q2

REPORT INFORMATION
  Report Type: 
  Country: None (occurrence: None)
  Receive Date: 20110421
  Receipt Date: 20110412
  Transmission Date: 20111010
  Serious: Yes (Hospitalization, Disabling)
  Sender: FDA-Public Use
  Company Number: CA-US-EMD SERONO, INC.-7001485

PATIENT
  Sex: Male

DRUGS (3)
  1. NAPROXEN [Concomitant]
  2. REBIF [Suspect]
     Indication: MULTIPLE SCLEROSIS
     Route: 058
     Dates: start: 20030506
  3. CARBAMAZEPINE [Concomitant]

REACTIONS (14)
  - LIMB DISCOMFORT [None]
  - PERSONALITY CHANGE [None]
  - ANOSMIA [None]
  - BRAIN INJURY [None]
  - VISUAL IMPAIRMENT [None]
  - HEAD INJURY [None]
  - GAIT DISTURBANCE [None]
  - AGEUSIA [None]
  - DRUG ERUPTION [None]
  - SUBARACHNOID HAEMORRHAGE [None]
  - MEMORY IMPAIRMENT [None]
  - APHASIA [None]
  - LACERATION [None]
  - HEADACHE [None]
